FAERS Safety Report 8533144-3 (Version None)
Quarter: 2012Q2

REPORT INFORMATION
  Report Type: 
  Country: None (occurrence: None)
  Receive Date: 20120412
  Receipt Date: 20090126
  Transmission Date: 20120825
  Serious: Yes (Other)
  Sender: FDA-Public Use
  Company Number: PHEH2006US08727

PATIENT
  Age: 54 Year
  Sex: Female
  Weight: 66.2 kg

DRUGS (6)
  1. PROVERA [Suspect]
     Indication: MENOPAUSAL SYMPTOMS
     Dosage: 5 MG
     Dates: start: 19971001, end: 19990601
  2. PREMPRO [Suspect]
     Indication: MENOPAUSAL SYMPTOMS
     Dosage: 0.625 MG
     Dates: start: 19990801, end: 20000701
  3. PREMARIN [Suspect]
     Indication: MENOPAUSAL SYMPTOMS
     Dosage: 0.625 MG
     Dates: start: 19971001, end: 19990601
  4. VIVELLE [Suspect]
     Indication: MENOPAUSAL SYMPTOMS
     Dosage: 0.05 MG
     Dates: start: 20020601, end: 20020801
  5. ESTALIS COMBIPATCH (ESTRADIOL, NORETHISTERONE ACETATE) TRANS-THERAPEUT [Suspect]
     Indication: HORMONE REPLACEMENT THERAPY
     Dosage: TRANSDERMAL
     Route: 062
  6. MEDROXYPROGESTERONE ACETATE [Suspect]
     Indication: MENOPAUSAL SYMPTOMS
     Dosage: 5 MG
     Dates: start: 19971001, end: 19990601

REACTIONS (6)
  - BIOPSY BREAST [None]
  - MAMMOGRAM ABNORMAL [None]
  - BREAST CANCER [None]
  - BREAST PAIN [None]
  - MASTECTOMY [None]
  - NIPPLE DISORDER [None]
